FAERS Safety Report 18382913 (Version 2)
Quarter: 2021Q1

REPORT INFORMATION
  Report Type: Report from Study
  Country: FR (occurrence: FR)
  Receive Date: 20201014
  Receipt Date: 20210211
  Transmission Date: 20210419
  Serious: Yes (Hospitalization, Other)
  Sender: FDA-Public Use
  Company Number: FR-SAMSUNG BIOEPIS-SB-2020-26799

PATIENT
  Age: 32 Year
  Sex: Male

DRUGS (2)
  1. FLIXABI [Suspect]
     Active Substance: INFLIXIMAB
     Indication: ANKYLOSING SPONDYLITIS
     Dosage: VIAL
     Route: 042
     Dates: start: 20190410
  2. METOJECT [Suspect]
     Active Substance: METHOTREXATE SODIUM
     Indication: PRODUCT USED FOR UNKNOWN INDICATION
     Route: 065

REACTIONS (3)
  - Hepatocellular injury [Recovered/Resolved]
  - Hepatitis [Recovering/Resolving]
  - Axial spondyloarthritis [Recovered/Resolved]

NARRATIVE: CASE EVENT DATE: 20191121
